FAERS Safety Report 14292648 (Version 2)
Quarter: 2018Q1

REPORT INFORMATION
  Report Type: Spontaneous
  Country: US (occurrence: US)
  Receive Date: 20171215
  Receipt Date: 20180212
  Transmission Date: 20180509
  Serious: No
  Sender: FDA-Public Use
  Company Number: US-BAYER-2017-239491

PATIENT
  Age: 83 Year
  Sex: Male
  Weight: 63.95 kg

DRUGS (2)
  1. ALEVE [Suspect]
     Active Substance: NAPROXEN SODIUM
     Indication: PAIN
     Dosage: 1 DF, ONCE
     Route: 065
     Dates: start: 20171209, end: 20171209
  2. BAYER ASPIRIN [Suspect]
     Active Substance: ASPIRIN
     Indication: PAIN
     Dosage: 1 DF, UNK

REACTIONS (5)
  - Throat irritation [None]
  - Facial pain [Recovered/Resolved]
  - Product administered at inappropriate site [Unknown]
  - Oral discomfort [None]
  - Product administered at inappropriate site [Unknown]

NARRATIVE: CASE EVENT DATE: 20171209
